FAERS Safety Report 18045156 (Version 1)
Quarter: 2020Q3

REPORT INFORMATION
  Report Type: Spontaneous
  Country: DE (occurrence: DE)
  Receive Date: 20200720
  Receipt Date: 20200720
  Transmission Date: 20201103
  Serious: Yes (Other)
  Sender: FDA-Public Use
  Company Number: NVSC2020DE202766

PATIENT
  Age: 66 Year
  Sex: Female

DRUGS (2)
  1. QUETIAPIN ? 1 A PHARMA 25 MG FILMTABLETTEN [Suspect]
     Active Substance: QUETIAPINE
     Indication: DEPRESSION
     Dosage: 50 MG, QD
     Route: 065
     Dates: start: 20200709, end: 202007
  2. QUETIAPIN ? 1 A PHARMA 25 MG FILMTABLETTEN [Suspect]
     Active Substance: QUETIAPINE
     Dosage: 150 MG, QD
     Route: 065
     Dates: start: 20200711

REACTIONS (2)
  - Back pain [Unknown]
  - Arteriospasm coronary [Unknown]
